FAERS Safety Report 18662566 (Version 1)
Quarter: 2020Q4

REPORT INFORMATION
  Report Type: Spontaneous
  Country: CZ (occurrence: CZ)
  Receive Date: 20201224
  Receipt Date: 20201224
  Transmission Date: 20210114
  Serious: Yes (Other)
  Sender: FDA-Public Use
  Company Number: CZ-LUPIN PHARMACEUTICALS INC.-2020-06744

PATIENT
  Age: 57 Year
  Sex: Male

DRUGS (25)
  1. PREGABALIN. [Suspect]
     Active Substance: PREGABALIN
     Indication: PAIN
     Dosage: UNK-GRADUALLY INCREASING DOSES UP TO 150-150-300 MG
     Route: 065
     Dates: start: 201506
  2. TRAMADOL. [Suspect]
     Active Substance: TRAMADOL
     Indication: PAIN
     Dosage: UNK-30 DROPS DURING PAIN AGGRAVATION UP TO 3 TIMES A DAY.
     Route: 065
     Dates: start: 201505
  3. CALYPSOL [Suspect]
     Active Substance: KETAMINE HYDROCHLORIDE
     Indication: PAIN
     Dosage: 25 MILLIGRAM-MAXIMUM 4 TIMES DAILY
     Route: 048
     Dates: start: 201505, end: 201506
  4. PALEXIA [Concomitant]
     Active Substance: TAPENTADOL HYDROCHLORIDE
     Dosage: 100 MILLIGRAM, BID-FILM-COATED TABLETS
     Route: 065
     Dates: start: 201606
  5. GABAPENTIN. [Concomitant]
     Active Substance: GABAPENTIN
     Indication: PAIN
     Dosage: 300 MILLIGRAM, TID
     Route: 065
     Dates: start: 201505
  6. VERSATIS [Suspect]
     Active Substance: LIDOCAINE
     Dosage: UNK-UNK-AS MAGISTRAL PREPARATION
     Route: 061
     Dates: start: 2016
  7. GABAPENTIN. [Concomitant]
     Active Substance: GABAPENTIN
     Dosage: 400 MILLIGRAM
     Route: 065
     Dates: start: 201505
  8. BUPIVACAINE;CLONIDINE;MORPHINE [Concomitant]
     Indication: PAIN
     Dosage: UNK-7 ML OF ANALGESIC MIXTURE (20 ML OF 0% BUPIVACAINE + 1 ML OF MORPHINE), WHICH WAS SUPPLEMENTED W
     Route: 065
     Dates: start: 201512, end: 201605
  9. PALEXIA [Concomitant]
     Active Substance: TAPENTADOL HYDROCHLORIDE
     Dosage: 150 MILLIGRAM
     Route: 065
     Dates: start: 201511
  10. CYANOCOBALAMIN. [Concomitant]
     Active Substance: CYANOCOBALAMIN
     Indication: PAIN
     Dosage: 1000 MICROGRAM
     Route: 030
     Dates: start: 201505
  11. CALYPSOL [Suspect]
     Active Substance: KETAMINE HYDROCHLORIDE
     Dosage: 25 MILLIGRAM-MAXIMUM FOUR TIMES DAILY
     Route: 048
     Dates: start: 2016
  12. NEUROL [ALPRAZOLAM] [Concomitant]
     Active Substance: ALPRAZOLAM
     Indication: TENSION
     Dosage: 0.5 MILLIGRAM
     Route: 065
     Dates: start: 201605
  13. TRAMADOL. [Suspect]
     Active Substance: TRAMADOL
     Dosage: 400 MILLIGRAM, BID-TABLET
     Route: 065
     Dates: start: 201505
  14. LEXAURIN [Suspect]
     Active Substance: BROMAZEPAM
     Indication: PAIN
     Dosage: 1.5 MILLIGRAM
     Route: 065
     Dates: start: 201506, end: 201511
  15. TRAMADOL/PARACETAMOL [Concomitant]
     Active Substance: ACETAMINOPHEN\TRAMADOL
     Indication: PAIN
     Dosage: UNK UNK, TID
     Route: 065
     Dates: start: 201505
  16. PALEXIA [Concomitant]
     Active Substance: TAPENTADOL HYDROCHLORIDE
     Indication: PAIN
     Dosage: 150 MILLIGRAM, QD-CONTROLLED-RELEASE TABLETS (PALEXIA RETARD) 150 MG PER NIGHT,
     Route: 065
     Dates: start: 201506
  17. QUTENZA [Suspect]
     Active Substance: CAPSAICIN
     Indication: PAIN
     Dosage: UNK
     Route: 061
  18. PREGABALIN. [Suspect]
     Active Substance: PREGABALIN
     Dosage: 150 MILLIGRAM, BID
     Route: 065
  19. HERPESIN [ACICLOVIR] [Suspect]
     Active Substance: ACYCLOVIR
     Indication: PAIN
     Dosage: UNK
     Route: 065
     Dates: start: 201505
  20. MENTHOL. [Suspect]
     Active Substance: MENTHOL
     Indication: PAIN
     Dosage: UNK-AS MAGISTRAL PREPARATION
     Route: 061
     Dates: start: 2016
  21. PALEXIA [Concomitant]
     Active Substance: TAPENTADOL HYDROCHLORIDE
     Indication: PAIN
     Dosage: 100 MILLIGRAM, TID
     Route: 065
     Dates: start: 201505
  22. TRIMECAINE [Concomitant]
     Active Substance: TRIMECAINE
     Indication: PAIN
     Dosage: UNK-PARAVERTEBRAL INJECTION
     Route: 065
     Dates: start: 201505
  23. PREGABALIN. [Suspect]
     Active Substance: PREGABALIN
     Dosage: 300 MILLIGRAM, BID
     Route: 065
  24. SERTRALINE [Suspect]
     Active Substance: SERTRALINE HYDROCHLORIDE
     Indication: PAIN
     Dosage: 50 MILLIGRAM, QD
     Route: 065
     Dates: start: 201506
  25. VERSATIS [Suspect]
     Active Substance: LIDOCAINE
     Indication: PAIN
     Dosage: UNK
     Route: 061
     Dates: start: 201506

REACTIONS (1)
  - Drug ineffective [Unknown]
